FAERS Safety Report 5571092-1 (Version None)
Quarter: 2007Q4

REPORT INFORMATION
  Report Type: 
  Country: None (occurrence: None)
  Receive Date: 20071221
  Receipt Date: 20071220
  Transmission Date: 20080405
  Serious: Yes (Other)
  Sender: FDA-Public Use
  Company Number: US-ASTRAZENECA-2007UW28686

PATIENT
  Age: 38 Year
  Sex: Female

DRUGS (11)
  1. SEROQUEL [Suspect]
     Route: 048
  2. SEROQUEL [Suspect]
     Route: 048
     Dates: start: 20070516
  3. SEROQUEL [Suspect]
     Route: 048
  4. LAMICTAL [Suspect]
     Indication: BIPOLAR DISORDER
     Route: 048
  5. LAMICTAL [Suspect]
     Route: 048
     Dates: start: 20070516
  6. FOLIC ACID [Concomitant]
  7. PRENATAL VITAMINS [Concomitant]
  8. GLUCOPHAGE [Concomitant]
     Dates: start: 20061215, end: 20070101
  9. CLOMID [Concomitant]
     Dates: start: 20061215, end: 20061220
  10. KLONOPIN [Concomitant]
  11. PROGESTERONE [Concomitant]

REACTIONS (3)
  - DELIVERY [None]
  - DRUG EXPOSURE DURING PREGNANCY [None]
  - GESTATIONAL DIABETES [None]
